FAERS Safety Report 8256368-1 (Version None)
Quarter: 2012Q2

REPORT INFORMATION
  Report Type: 
  Country: None (occurrence: None)
  Receive Date: 20120402
  Receipt Date: 20120402
  Transmission Date: 20120825
  Serious: Yes (Hospitalization)
  Sender: FDA-Public Use
  Company Number: None

PATIENT
  Sex: Male
  Weight: 74.38 kg

DRUGS (1)
  1. CISPLATIN [Suspect]
     Dosage: 164 MG

REACTIONS (1)
  - GASTROINTESTINAL HAEMORRHAGE [None]
